FAERS Safety Report 17607512 (Version 2)
Quarter: 2020Q2

REPORT INFORMATION
  Report Type: Spontaneous
  Country: CN (occurrence: CN)
  Receive Date: 20200331
  Receipt Date: 20200406
  Transmission Date: 20200713
  Serious: Yes (Hospitalization)
  Sender: FDA-Public Use
  Company Number: CN-NOVOPROD-720302

PATIENT
  Sex: Female

DRUGS (4)
  1. NOVOLIN R [Suspect]
     Active Substance: INSULIN HUMAN
     Dosage: UNK
     Route: 065
  2. NOVOLIN R [Suspect]
     Active Substance: INSULIN HUMAN
     Indication: PRODUCT USED FOR UNKNOWN INDICATION
     Dosage: UNK
     Route: 065
  3. NOVOLIN R [Suspect]
     Active Substance: INSULIN HUMAN
     Dosage: UNK
     Route: 065
  4. NOVOLIN R [Suspect]
     Active Substance: INSULIN HUMAN
     Dosage: UNK
     Route: 065

REACTIONS (1)
  - Suicide attempt [Unknown]
